FAERS Safety Report 7962537-8 (Version None)
Quarter: 2011Q4

REPORT INFORMATION
  Report Type: 
  Country: None (occurrence: None)
  Receive Date: 20111207
  Receipt Date: 20111130
  Transmission Date: 20120403
  Serious: Yes (Other)
  Sender: FDA-Public Use
  Company Number: JP-GLAXOSMITHKLINE-B0763453A

PATIENT
  Sex: Male
  Weight: 55 kg

DRUGS (7)
  1. YODEL S [Concomitant]
     Dosage: 80MG PER DAY
     Route: 048
  2. LORELCO [Concomitant]
     Dosage: 500MG PER DAY
     Route: 048
  3. ASPIRIN [Concomitant]
     Dosage: 100MG PER DAY
     Route: 048
  4. ZOVIRAX [Suspect]
     Indication: ENCEPHALITIS HERPES
     Dosage: 250MG PER DAY
     Route: 042
     Dates: start: 20111112, end: 20111114
  5. SIGMART [Concomitant]
     Dosage: 10MG PER DAY
     Route: 048
  6. RISPERDAL [Concomitant]
     Route: 065
  7. DILTIAZEM HCL [Concomitant]
     Dosage: 200MG PER DAY
     Route: 048

REACTIONS (2)
  - ALTERED STATE OF CONSCIOUSNESS [None]
  - ENCEPHALOPATHY [None]
